FAERS Safety Report 9181659 (Version 8)
Quarter: 2014Q3

REPORT INFORMATION
  Report Type: Spontaneous
  Country: US (occurrence: US)
  Receive Date: 20130322
  Receipt Date: 20140902
  Transmission Date: 20150326
  Serious: Yes (Hospitalization, Other)
  Sender: FDA-Public Use
  Company Number: US-JNJFOC-20120514521

PATIENT
  Age: 67 Year
  Sex: Female
  Weight: 92.99 kg

DRUGS (4)
  1. ALCOHOL. [Suspect]
     Active Substance: ALCOHOL
     Indication: PRODUCT USED FOR UNKNOWN INDICATION
     Route: 065
  2. TYLENOL ANALGESIC UNKNOWN [Suspect]
     Active Substance: ACETAMINOPHEN
     Indication: PRODUCT USED FOR UNKNOWN INDICATION
     Route: 065
  3. TYLENOL COLD [Suspect]
     Active Substance: ACETAMINOPHEN\CHLORPHENIRAMINE MALEATE\PHENYLPROPANOLAMINE
     Indication: NASOPHARYNGITIS
     Route: 065
     Dates: start: 201006, end: 20100607
  4. TYLENOL ANALGESIC UNKNOWN [Suspect]
     Active Substance: ACETAMINOPHEN
     Route: 065

REACTIONS (12)
  - Hyperbilirubinaemia [Unknown]
  - Epistaxis [Unknown]
  - Coagulopathy [Unknown]
  - Hepatic encephalopathy [Recovering/Resolving]
  - Fall [Unknown]
  - Acute hepatic failure [Recovering/Resolving]
  - Renal failure acute [Recovering/Resolving]
  - Facial bones fracture [Unknown]
  - Hepatorenal syndrome [Unknown]
  - Confusional state [Unknown]
  - Toxicity to various agents [Unknown]
  - Convulsion [Recovering/Resolving]

NARRATIVE: CASE EVENT DATE: 201006
